FAERS Safety Report 11964843 (Version 2)
Quarter: 2016Q1

REPORT INFORMATION
  Report Type: Spontaneous
  Country: GR (occurrence: GR)
  Receive Date: 20160127
  Receipt Date: 20160304
  Transmission Date: 20160526
  Serious: Yes (Hospitalization)
  Sender: FDA-Public Use
  Company Number: GR-ABBVIE-16K-066-1543243-00

PATIENT
  Age: 39 Year
  Sex: Female

DRUGS (1)
  1. HUMIRA [Suspect]
     Active Substance: ADALIMUMAB
     Indication: CROHN^S DISEASE
     Route: 058
     Dates: start: 20151118

REACTIONS (8)
  - Subileus [Unknown]
  - Vomiting [Unknown]
  - Abdominal pain [Unknown]
  - Drug ineffective [Not Recovered/Not Resolved]
  - Spinal pain [Recovering/Resolving]
  - C-reactive protein increased [Unknown]
  - Musculoskeletal stiffness [Recovering/Resolving]
  - Subileus [Not Recovered/Not Resolved]

NARRATIVE: CASE EVENT DATE: 2015
